FAERS Safety Report 15655400 (Version 1)
Quarter: 2018Q4

REPORT INFORMATION
  Report Type: Spontaneous
  Country: US (occurrence: US)
  Receive Date: 20181114
  Receipt Date: 20181114
  Transmission Date: 20190205
  Serious: No
  Sender: FDA-Public Use
  Company Number: None

PATIENT
  Age: 16 Year
  Sex: Male

DRUGS (1)
  1. NORDITROPIN [Suspect]
     Active Substance: SOMATROPIN
     Indication: HYPOPITUITARISM
     Dosage: 2.4MG 6 DAYS A WEEK; SUB Q?
     Route: 058
     Dates: start: 20180321

REACTIONS (2)
  - Myalgia [None]
  - Bone pain [None]

NARRATIVE: CASE EVENT DATE: 20181111
